FAERS Safety Report 4568042-3 (Version None)
Quarter: 2005Q1

REPORT INFORMATION
  Report Type: 
  Country: None (occurrence: None)
  Receive Date: 20050202
  Receipt Date: 20050119
  Transmission Date: 20050727
  Serious: Yes (Other)
  Sender: FDA-Public Use
  Company Number: PHFR2005GB00642

PATIENT
  Sex: Female

DRUGS (3)
  1. TEGRETOL [Suspect]
     Indication: BIPOLAR I DISORDER
     Dosage: 600 MG/DAY
     Dates: start: 19840101
  2. TEMAZEPAM [Suspect]
  3. THYROXINE [Suspect]

REACTIONS (9)
  - ARTHRALGIA [None]
  - CONTUSION [None]
  - DRUG INTERACTION [None]
  - DYSPNOEA [None]
  - FALL [None]
  - RASH [None]
  - SPEECH DISORDER [None]
  - THYROXINE ABNORMAL [None]
  - WRIST FRACTURE [None]
